FAERS Safety Report 19490552 (Version 1)
Quarter: 2021Q3

REPORT INFORMATION
  Report Type: Spontaneous
  Country: US (occurrence: US)
  Receive Date: 20210705
  Receipt Date: 20210705
  Transmission Date: 20211014
  Serious: No
  Sender: FDA-Public Use
  Company Number: US-TEVA-2021-US-1929920

PATIENT
  Sex: Female

DRUGS (8)
  1. ATOMOXETINE HCL 100 MG CAPSULE [Concomitant]
  2. METOPROLOL SUCCINATE. [Concomitant]
     Active Substance: METOPROLOL SUCCINATE
  3. FLUOXETINE HCL 10 MG TABLET [Concomitant]
     Active Substance: FLUOXETINE HYDROCHLORIDE
  4. DROSPIRENONE?ETHINYL ESTRADIOL [Concomitant]
     Active Substance: DROSPIRENONE\ETHINYL ESTRADIOL
  5. MULTIVITAMINS WITH IRON TABLET [Concomitant]
  6. AUSTEDO [Suspect]
     Active Substance: DEUTETRABENAZINE
     Indication: DYSKINESIA
     Dosage: 24 MILLIGRAM DAILY;
     Route: 048
  7. VITAMIN D3 25 MCG CAPSULE, [Concomitant]
  8. TRIHEXYPHENIDYL HCL 2 MG TABLET [Concomitant]
     Active Substance: TRIHEXYPHENIDYL HYDROCHLORIDE

REACTIONS (1)
  - Muscle twitching [Unknown]
